FAERS Safety Report 5035352-5 (Version None)
Quarter: 2006Q2

REPORT INFORMATION
  Report Type: 
  Country: None (occurrence: None)
  Receive Date: 20060627
  Receipt Date: 20060619
  Transmission Date: 20061013
  Serious: Yes (Hospitalization)
  Sender: FDA-Public Use
  Company Number: FR-AVENTIS-200612227FR

PATIENT
  Age: 85 Year
  Sex: Male

DRUGS (5)
  1. LASILIX [Suspect]
     Route: 048
     Dates: end: 20060520
  2. IXEL [Suspect]
     Route: 048
     Dates: start: 20060519
  3. LOXAPAC [Suspect]
     Route: 048
     Dates: start: 20060515, end: 20060521
  4. SOTALOL HCL [Concomitant]
     Dates: end: 20060519
  5. PREVISCAN [Concomitant]
     Dates: end: 20060518

REACTIONS (1)
  - NEUROLEPTIC MALIGNANT SYNDROME [None]
